FAERS Safety Report 12447313 (Version 2)
Quarter: 2016Q3

REPORT INFORMATION
  Report Type: Spontaneous
  Country: US (occurrence: US)
  Receive Date: 20160608
  Receipt Date: 20160829
  Transmission Date: 20161109
  Serious: Yes (Life-Threatening, Hospitalization, Other)
  Sender: FDA-Public Use
  Company Number: US-ELI_LILLY_AND_COMPANY-US201606001279

PATIENT
  Age: 51 Year
  Sex: Male
  Weight: 91.61 kg

DRUGS (1)
  1. AXIRON [Suspect]
     Active Substance: TESTOSTERONE
     Indication: ANDROGEN REPLACEMENT THERAPY
     Dosage: UNK
     Route: 065
     Dates: start: 20110721, end: 20140611

REACTIONS (4)
  - Dyspnoea [Unknown]
  - Acute myocardial infarction [Unknown]
  - Blood glucose increased [Unknown]
  - Chest pain [Unknown]

NARRATIVE: CASE EVENT DATE: 20140620
